FAERS Safety Report 8200471-9 (Version None)
Quarter: 2012Q1

REPORT INFORMATION
  Report Type: 
  Country: None (occurrence: None)
  Receive Date: 20120312
  Receipt Date: 20120307
  Transmission Date: 20120608
  Serious: Yes (Other)
  Sender: FDA-Public Use
  Company Number: US-AMGEN-USASP2012014854

PATIENT
  Age: 46 Year
  Sex: Female
  Weight: 84.8 kg

DRUGS (2)
  1. PREDNISONE [Concomitant]
     Dosage: 30 MG, UNK
  2. NPLATE [Suspect]
     Indication: IDIOPATHIC THROMBOCYTOPENIC PURPURA
     Dates: start: 20110128

REACTIONS (3)
  - PULMONARY EMBOLISM [None]
  - PETECHIAE [None]
  - THERAPEUTIC RESPONSE DECREASED [None]
